FAERS Safety Report 8365132-4 (Version None)
Quarter: 2012Q2

REPORT INFORMATION
  Report Type: 
  Country: None (occurrence: None)
  Receive Date: 20120516
  Receipt Date: 20120508
  Transmission Date: 20120825
  Serious: Yes (Other)
  Sender: FDA-Public Use
  Company Number: JP-B.I. PHARMACEUTICALS,INC./RIDGEFIELD-2012-BP-10727YA

PATIENT
  Age: 80 Year
  Sex: Male

DRUGS (5)
  1. RIFAMPICIN [Concomitant]
  2. TAMSULOSIN HCL [Suspect]
     Indication: BENIGN PROSTATIC HYPERPLASIA
     Dosage: 0.2 MG
     Route: 048
  3. ETHAMBUTOL HYDROCHLORIDE [Concomitant]
  4. ISONIAZID [Concomitant]
  5. PYRAZINAMIDE [Concomitant]

REACTIONS (1)
  - URINARY RETENTION [None]
